FAERS Safety Report 6620473-3 (Version None)
Quarter: 2010Q1

REPORT INFORMATION
  Report Type: 
  Country: None (occurrence: None)
  Receive Date: 20100308
  Receipt Date: 20100308
  Transmission Date: 20100710
  Serious: No
  Sender: FDA-Public Use
  Company Number: None

PATIENT
  Age: 5 Year
  Sex: Female

DRUGS (1)
  1. DIDANOSINE [Suspect]
     Indication: HIV INFECTION
     Dates: start: 19920820, end: 19970820

REACTIONS (4)
  - ASCITES [None]
  - PORTAL HYPERTENSION [None]
  - SPLENOMEGALY [None]
  - VARICES OESOPHAGEAL [None]
